FAERS Safety Report 10582798 (Version 2)
Quarter: 2014Q4

REPORT INFORMATION
  Report Type: Report from Study
  Country: US (occurrence: US)
  Receive Date: 20141113
  Receipt Date: 20141121
  Transmission Date: 20150529
  Serious: Yes (Hospitalization)
  Sender: FDA-Public Use
  Company Number: PHHO2014US015013

PATIENT
  Age: 47 Year
  Sex: Female
  Weight: 39.8 kg

DRUGS (2)
  1. ZYKADIA [Suspect]
     Active Substance: CERITINIB
     Indication: NON-SMALL CELL LUNG CANCER
     Dosage: 450 MG, QD
     Route: 048
     Dates: start: 20130125, end: 20141020
  2. IBUPROFEN. [Concomitant]
     Active Substance: IBUPROFEN
     Indication: PLEURITIC PAIN
     Dosage: 600 MG, PRN
     Route: 065
     Dates: start: 20141027

REACTIONS (2)
  - Pericarditis [Recovered/Resolved]
  - Pericardial effusion [Recovered/Resolved]

NARRATIVE: CASE EVENT DATE: 20141105
